FAERS Safety Report 21294203 (Version 3)
Quarter: 2022Q4

REPORT INFORMATION
  Report Type: Report from Study
  Country: KR (occurrence: KR)
  Receive Date: 20220905
  Receipt Date: 20221027
  Transmission Date: 20230112
  Serious: Yes (Other)
  Sender: FDA-Public Use
  Company Number: KR-NOVARTISPH-NVSC2022KR199454

PATIENT
  Age: 77 Year
  Sex: Male
  Weight: 76 kg

DRUGS (6)
  1. BEOVU [Suspect]
     Active Substance: BROLUCIZUMAB-DBLL
     Indication: Neovascular age-related macular degeneration
     Dosage: 6 MG
     Route: 031
     Dates: start: 20220414, end: 20220414
  2. OCUFLOX [Concomitant]
     Active Substance: OFLOXACIN
     Indication: Evidence based treatment
     Dosage: 1 DOSAGE FORM, 1 DROP, 1 (EYE DROP)
     Route: 047
     Dates: start: 20220414, end: 20220414
  3. OROCIN [Concomitant]
     Indication: Evidence based treatment
     Dosage: 1 DOSAGE FORM, 1 DROP, 1 (EYE DROP)
     Route: 047
     Dates: start: 20220414, end: 20220414
  4. PARACAINE [Concomitant]
     Active Substance: PROPARACAINE HYDROCHLORIDE
     Indication: Evidence based treatment
     Dosage: 1 DOSAGE FORM, 1 DROP, 1 (EYE DROP)
     Route: 047
     Dates: start: 20220414, end: 20220414
  5. TROPHERINE [Concomitant]
     Indication: Evidence based treatment
     Dosage: 1 DOSAGE FORM, 1 DROP, 1 (EYE DROP)
     Route: 047
     Dates: start: 20220414, end: 20220414
  6. VIGAMOX [Concomitant]
     Active Substance: MOXIFLOXACIN HYDROCHLORIDE
     Indication: Evidence based treatment
     Dosage: 1 DOSAGE FORM, 1 DROP, 3 (EYE DROP)
     Route: 047
     Dates: start: 20220414, end: 20220416

REACTIONS (1)
  - Idiopathic orbital inflammation [Recovered/Resolved]

NARRATIVE: CASE EVENT DATE: 20220512
